FAERS Safety Report 16409514 (Version 8)
Quarter: 2020Q1

REPORT INFORMATION
  Report Type: Report from Study
  Country: IL (occurrence: IL)
  Receive Date: 20190610
  Receipt Date: 20200325
  Transmission Date: 20200409
  Serious: Yes (Hospitalization, Other)
  Sender: FDA-Public Use
  Company Number: IL-JNJFOC-20190607245

PATIENT
  Sex: Male

DRUGS (1)
  1. STELARA [Suspect]
     Active Substance: USTEKINUMAB
     Indication: PSORIASIS
     Route: 058
     Dates: start: 20181202

REACTIONS (4)
  - Psoriasis [Not Recovered/Not Resolved]
  - Therapeutic response decreased [Recovered/Resolved]
  - Basal cell carcinoma [Unknown]
  - Surgery [Unknown]

NARRATIVE: CASE EVENT DATE: 2019
